FAERS Safety Report 15572279 (Version 2)
Quarter: 2019Q2

REPORT INFORMATION
  Report Type: Spontaneous
  Country: BE (occurrence: BE)
  Receive Date: 20181031
  Receipt Date: 20190423
  Transmission Date: 20190711
  Serious: Yes (Hospitalization)
  Sender: FDA-Public Use
  Company Number: BE-ELI_LILLY_AND_COMPANY-BE201810010620

PATIENT
  Sex: Female
  Weight: 153 kg

DRUGS (6)
  1. THYROXINE [Concomitant]
     Active Substance: LEVOTHYROXINE
     Indication: HYPOTHYROIDISM
     Dosage: 25 UG, DAILY
     Route: 048
     Dates: start: 201808
  2. ZYPADHERA [Suspect]
     Active Substance: OLANZAPINE PAMOATE
     Indication: SCHIZOPHRENIA
     Dosage: UNK UNK, UNKNOWN
     Route: 030
  3. ZYPADHERA [Suspect]
     Active Substance: OLANZAPINE PAMOATE
     Dosage: 405 MG, EVERY 28DAYS
     Route: 030
     Dates: start: 201807
  4. TEMESTA [LORAZEPAM] [Concomitant]
     Active Substance: LORAZEPAM
     Indication: ANXIETY
     Dosage: UNK, UNKNOWN
     Route: 048
     Dates: start: 201807, end: 201901
  5. ZYPADHERA [Suspect]
     Active Substance: OLANZAPINE PAMOATE
     Dosage: 400 MG, MONTHLY (1/M)
     Route: 030
     Dates: start: 201807
  6. ZYPADHERA [Suspect]
     Active Substance: OLANZAPINE PAMOATE
     Dosage: 300 MG, EVERY 14 DAYS
     Route: 030
     Dates: start: 201807

REACTIONS (3)
  - Alopecia [Unknown]
  - Hypophagia [Unknown]
  - Malnutrition [Unknown]

NARRATIVE: CASE EVENT DATE: 201807
